FAERS Safety Report 9260844 (Version 1)
Quarter: 2013Q2

REPORT INFORMATION
  Report Type: Spontaneous
  Country: US (occurrence: US)
  Receive Date: 20130429
  Receipt Date: 20130429
  Transmission Date: 20140414
  Serious: Yes (Other)
  Sender: FDA-Public Use
  Company Number: US-PFIZER INC-2013131255

PATIENT
  Age: 76 Year
  Sex: Female
  Weight: 54.42 kg

DRUGS (7)
  1. GABAPENTIN [Suspect]
     Indication: PAIN IN EXTREMITY
     Dosage: UNK, 1X/DAY (1 OR 2 CAPSULES)
     Route: 048
     Dates: start: 201304
  2. GABAPENTIN [Suspect]
     Dosage: UNK
     Route: 048
  3. OMEPRAZOLE [Suspect]
     Dosage: UNK
     Dates: start: 2012
  4. OXYBUTYNIN [Suspect]
     Indication: HYPERTONIC BLADDER
     Dosage: UNK
     Dates: start: 201304
  5. OXYBUTYNIN [Suspect]
     Dosage: UNK, SINGLE
  6. ATIVAN [Concomitant]
     Indication: PSYCHOMOTOR HYPERACTIVITY
     Dosage: 0.05 MG, UNK
  7. PRAVASTATIN [Concomitant]
     Indication: BLOOD CHOLESTEROL ABNORMAL
     Dosage: 40 MG, 1X/DAY

REACTIONS (7)
  - Gastrooesophageal reflux disease [Unknown]
  - Malaise [Unknown]
  - Drug ineffective [Unknown]
  - Dizziness [Unknown]
  - Nausea [Unknown]
  - Insomnia [Unknown]
  - Restless legs syndrome [Unknown]
